FAERS Safety Report 11648242 (Version 1)
Quarter: 2015Q4

REPORT INFORMATION
  Report Type: Spontaneous
  Country: US (occurrence: None)
  Receive Date: 20151020
  Receipt Date: 20151020
  Transmission Date: 20160304
  Serious: No
  Sender: FDA-Public Use
  Company Number: None

PATIENT
  Age: 80 Year
  Sex: Male

DRUGS (1)
  1. ISOVUE [Suspect]
     Active Substance: IOPAMIDOL
     Indication: IMAGING PROCEDURE
     Dosage: 70ML ONCE INTRAVENOUS
     Route: 042
     Dates: start: 20150928, end: 20150928

REACTIONS (4)
  - Pruritus [None]
  - Product quality issue [None]
  - Contrast media reaction [None]
  - Urticaria [None]

NARRATIVE: CASE EVENT DATE: 20150928
